FAERS Safety Report 9602124 (Version 1)
Quarter: 2013Q4

REPORT INFORMATION
  Report Type: Spontaneous
  Country: PT (occurrence: PT)
  Receive Date: 20131007
  Receipt Date: 20131007
  Transmission Date: 20140711
  Serious: Yes (Life-Threatening)
  Sender: FDA-Public Use
  Company Number: PT-SA-2013SA097850

PATIENT
  Age: 72 Year
  Sex: Female

DRUGS (1)
  1. LOVENOX [Suspect]
     Indication: THROMBOSIS
     Route: 058

REACTIONS (2)
  - Shock [Recovering/Resolving]
  - Intra-abdominal haematoma [Recovering/Resolving]
